FAERS Safety Report 7206475-7 (Version None)
Quarter: 2011Q1

REPORT INFORMATION
  Report Type: 
  Country: None (occurrence: None)
  Receive Date: 20110103
  Receipt Date: 20101222
  Transmission Date: 20110831
  Serious: Yes (Other)
  Sender: FDA-Public Use
  Company Number: GB-PFIZER INC-2010165648

PATIENT
  Age: 77 Year
  Sex: Male

DRUGS (3)
  1. GLICLAZIDE [Suspect]
     Dosage: 80 MG, 2X/DAY
     Dates: start: 20101201
  2. LIPITOR [Suspect]
     Indication: BLOOD CHOLESTEROL INCREASED
     Dosage: 10 MG, 1X/DAY
     Route: 048
  3. GLICLAZIDE [Suspect]
     Dosage: 80 MG, 2X/DAY
     Route: 048
     Dates: start: 20100201, end: 20100101

REACTIONS (5)
  - GYNAECOMASTIA [None]
  - BLOOD CHOLESTEROL INCREASED [None]
  - BREAST PAIN [None]
  - BREAST ENLARGEMENT [None]
  - BLOOD GLUCOSE INCREASED [None]
